FAERS Safety Report 6140373-5 (Version None)
Quarter: 2009Q1

REPORT INFORMATION
  Report Type: 
  Country: None (occurrence: None)
  Receive Date: 20090331
  Receipt Date: 20090331
  Transmission Date: 20090719
  Serious: Yes (Other)
  Sender: FDA-Public Use
  Company Number: None

PATIENT
  Sex: Female
  Weight: 72.5755 kg

DRUGS (2)
  1. CITALOPRAM HYDROBROMIDE [Suspect]
     Indication: BIPOLAR DISORDER
     Dosage: 40MG 2/DAY PO
     Route: 048
     Dates: start: 20081227, end: 20090127
  2. DIVALPROEX SODIUM [Suspect]
     Dosage: 500 MG 3/DAY PO
     Route: 048
     Dates: start: 20081227, end: 20090127

REACTIONS (1)
  - DRUG INEFFECTIVE [None]
